FAERS Safety Report 7384085-9 (Version None)
Quarter: 2011Q1

REPORT INFORMATION
  Report Type: 
  Country: None (occurrence: None)
  Receive Date: 20110330
  Receipt Date: 20110322
  Transmission Date: 20110831
  Serious: Yes (Hospitalization)
  Sender: FDA-Public Use
  Company Number: A0877037A

PATIENT
  Sex: Female
  Weight: 81.8 kg

DRUGS (7)
  1. LISINOPRIL [Concomitant]
  2. METFORMIN [Concomitant]
  3. XANAX [Concomitant]
  4. LIPITOR [Concomitant]
  5. INSULIN [Concomitant]
  6. NEURONTIN [Concomitant]
  7. AVANDIA [Suspect]
     Indication: DIABETES MELLITUS
     Dosage: 8MG PER DAY
     Route: 048

REACTIONS (7)
  - CARDIAC ARREST [None]
  - ISCHAEMIC CARDIOMYOPATHY [None]
  - FLUID RETENTION [None]
  - MYOCARDIAL INFARCTION [None]
  - CORONARY ARTERY DISEASE [None]
  - CARDIAC FAILURE CONGESTIVE [None]
  - FLUID OVERLOAD [None]
